FAERS Safety Report 8095973-2 (Version None)
Quarter: 2012Q1

REPORT INFORMATION
  Report Type: 
  Country: None (occurrence: None)
  Receive Date: 20120129
  Receipt Date: 20111227
  Transmission Date: 20120608
  Serious: No
  Sender: FDA-Public Use
  Company Number: US-ABBOTT-11P-163-0886908-00

PATIENT
  Age: 36 Year
  Sex: Female

DRUGS (11)
  1. IMURAN [Concomitant]
     Indication: COLITIS ULCERATIVE
     Dosage: DAILY
  2. VITAMIN A [Concomitant]
     Indication: PRODUCT USED FOR UNKNOWN INDICATION
     Dosage: NOT REPORTED
  3. SEASONIQUE [Concomitant]
     Indication: CONTRACEPTION
     Dosage: 0.15/0.03MG  DAILY
  4. HUMIRA [Suspect]
     Indication: COLITIS ULCERATIVE
     Dosage: LOADING DOSE; 160 MG X 1 DOSE ONLY
     Dates: start: 20111215, end: 20111215
  5. VITAMIN E [Concomitant]
     Indication: PRODUCT USED FOR UNKNOWN INDICATION
     Dosage: NOT REPORTED
  6. APRISO [Concomitant]
     Indication: COLITIS ULCERATIVE
     Dosage: 1 TAB =  3.75X4TABS=14.28MG DAILY
  7. LEVOXYL [Concomitant]
     Indication: HYPOTHYROIDISM
     Dosage: 75 MICROGRAMS
  8. FOLIC ACID [Concomitant]
     Indication: PRODUCT USED FOR UNKNOWN INDICATION
     Dosage: 1 MG DAILY
  9. VITAMIN D [Concomitant]
     Indication: PRODUCT USED FOR UNKNOWN INDICATION
     Dosage: NOT REPORTED
  10. FISH OIL [Concomitant]
     Indication: PRODUCT USED FOR UNKNOWN INDICATION
     Dosage: NOT REPORTED
  11. VITAMIN B COMPLEX CAP [Concomitant]
     Indication: PRODUCT USED FOR UNKNOWN INDICATION
     Dosage: DAILY

REACTIONS (6)
  - NAUSEA [None]
  - DECREASED APPETITE [None]
  - MUSCLE SPASMS [None]
  - GASTROINTESTINAL HAEMORRHAGE [None]
  - HEADACHE [None]
  - DIARRHOEA [None]
